FAERS Safety Report 9188380 (Version 2)
Quarter: 2013Q2

REPORT INFORMATION
  Report Type: Spontaneous
  Country: US (occurrence: EG)
  Receive Date: 20130325
  Receipt Date: 20130507
  Transmission Date: 20140414
  Serious: Yes (Other)
  Sender: FDA-Public Use
  Company Number: US-PFIZER INC-2013093951

PATIENT
  Age: 61 Year
  Sex: Male

DRUGS (2)
  1. CELEBREX [Suspect]
     Indication: BACK PAIN
     Dosage: 200 MG, 1X/DAY
     Route: 048
     Dates: start: 20121101, end: 20121118
  2. CELEBREX [Suspect]
     Indication: COMPRESSION FRACTURE

REACTIONS (3)
  - Upper gastrointestinal haemorrhage [Recovered/Resolved]
  - Helicobacter test positive [Unknown]
  - Anaemia [Unknown]
